FAERS Safety Report 19372783 (Version 2)
Quarter: 2021Q3

REPORT INFORMATION
  Report Type: Spontaneous
  Country: AU (occurrence: AU)
  Receive Date: 20210604
  Receipt Date: 20210829
  Transmission Date: 20211014
  Serious: Yes (Hospitalization)
  Sender: FDA-Public Use
  Company Number: AU-SAMSUNG BIOEPIS-SB-2021-10246

PATIENT
  Age: 67 Year
  Sex: Male

DRUGS (2)
  1. HYRIMOZ [Suspect]
     Active Substance: ADALIMUMAB-ADAZ
     Indication: PITYRIASIS RUBRA PILARIS
     Dosage: PRE?FILLED SYRINGE PLUS X100L, UNKNOWN
     Route: 065
  2. ADALIMUMAB [Suspect]
     Active Substance: ADALIMUMAB
     Indication: PITYRIASIS RUBRA PILARIS
     Dosage: UNKNOWN
     Route: 065

REACTIONS (2)
  - Organising pneumonia [Not Recovered/Not Resolved]
  - Off label use [Unknown]
